FAERS Safety Report 20841172 (Version 2)
Quarter: 2022Q2

REPORT INFORMATION
  Report Type: Spontaneous
  Country: DE (occurrence: DE)
  Receive Date: 20220517
  Receipt Date: 20220524
  Transmission Date: 20220720
  Serious: No
  Sender: FDA-Public Use
  Company Number: DE-UCBSA-2022027434

PATIENT

DRUGS (1)
  1. NEUPRO [Suspect]
     Active Substance: ROTIGOTINE
     Indication: Restless legs syndrome
     Dosage: 6MG

REACTIONS (3)
  - Therapeutic product effect incomplete [Unknown]
  - Product adhesion issue [Unknown]
  - Overdose [Unknown]
